FAERS Safety Report 25492918 (Version 1)
Quarter: 2025Q2

REPORT INFORMATION
  Report Type: Spontaneous
  Country: DE (occurrence: DE)
  Receive Date: 20250630
  Receipt Date: 20250630
  Transmission Date: 20250717
  Serious: Yes (Other)
  Sender: DEXCEL LTD.
  Company Number: None

PATIENT
  Age: 17 Year
  Sex: Female
  Weight: 66 kg

DRUGS (2)
  1. VENLAFAXINE HYDROCHLORIDE [Suspect]
     Active Substance: VENLAFAXINE HYDROCHLORIDE
     Indication: Depression
     Route: 048
     Dates: start: 20210801, end: 20250622
  2. VENLAFAXINE HYDROCHLORIDE [Suspect]
     Active Substance: VENLAFAXINE HYDROCHLORIDE
     Indication: Depression
     Dates: start: 20250601, end: 20250622

REACTIONS (4)
  - Fatigue [Recovered/Resolved with Sequelae]
  - Menstruation irregular [Unknown]
  - Suicidal ideation [Recovered/Resolved with Sequelae]
  - Xanthelasma [Recovered/Resolved with Sequelae]

NARRATIVE: CASE EVENT DATE: 20210801
